FAERS Safety Report 20701368 (Version 1)
Quarter: 2022Q2

REPORT INFORMATION
  Report Type: Other
  Country: CO (occurrence: None)
  Receive Date: 20220412
  Receipt Date: 20220412
  Transmission Date: 20220720
  Serious: Yes (Other)
  Sender: FDA-Public Use
  Company Number: CO-ROCHE-3066881

PATIENT
  Age: 23 Year
  Sex: Female

DRUGS (3)
  1. OSELTAMIVIR [Suspect]
     Active Substance: OSELTAMIVIR
     Indication: Influenza
     Route: 065
  2. HEPARIN [Suspect]
     Active Substance: HEPARIN SODIUM
     Indication: Thrombosis
     Dosage: 5000 UNITS
     Route: 042
  3. BETAMETHASONE [Suspect]
     Active Substance: BETAMETHASONE
     Indication: Lung disorder
     Route: 065

REACTIONS (13)
  - Subarachnoid haemorrhage [Unknown]
  - Brain death [Unknown]
  - Pulmonary necrosis [Unknown]
  - Haemothorax [Unknown]
  - Pulmonary necrosis [Unknown]
  - Hypopituitarism [Unknown]
  - Hypotension [Unknown]
  - Polyuria [Unknown]
  - Hypernatraemia [Unknown]
  - Haemorrhage [Unknown]
  - Anisocoria [Unknown]
  - Premature delivery [Unknown]
  - Maternal exposure during pregnancy [Unknown]
